FAERS Safety Report 19660268 (Version 3)
Quarter: 2021Q4

REPORT INFORMATION
  Report Type: Report from Study
  Country: US (occurrence: None)
  Receive Date: 20210805
  Receipt Date: 20211220
  Transmission Date: 20220303
  Serious: Yes (Death, Hospitalization)
  Sender: FDA-Public Use
  Company Number: US-ROCHE-2882601

PATIENT
  Age: 55 Year
  Sex: Female
  Weight: 38.4 kg

DRUGS (3)
  1. TIRAGOLUMAB [Suspect]
     Active Substance: TIRAGOLUMAB
     Indication: Metastatic neoplasm
     Dosage: ON SAME DAY FROM 1:40 TO 2:42 PM, RECEIVED THE MOST RECENT DOSE OF TIRAGOLUMAB PRIOR TO SERIOUS ADVE
     Route: 042
     Dates: start: 20210617
  2. ATEZOLIZUMAB [Suspect]
     Active Substance: ATEZOLIZUMAB
     Indication: Metastatic neoplasm
     Dosage: ON SAME DAY, RECEIVED THE MOST RECENT DOE OF ATEZOLIZUMAB FROM 11:36 AM TO 12:40 PM
     Route: 042
     Dates: start: 20210617
  3. CAPECITABINE [Suspect]
     Active Substance: CAPECITABINE
     Indication: Metastatic neoplasm
     Route: 048
     Dates: start: 20210617

REACTIONS (1)
  - Aorto-oesophageal fistula [Fatal]

NARRATIVE: CASE EVENT DATE: 20210703
